FAERS Safety Report 5476397-0 (Version None)
Quarter: 2007Q4

REPORT INFORMATION
  Report Type: 
  Country: None (occurrence: None)
  Receive Date: 20071003
  Receipt Date: 20070921
  Transmission Date: 20080405
  Serious: Yes (Disabling, Other)
  Sender: FDA-Public Use
  Company Number: GB-PFIZER INC-2007079936

PATIENT
  Age: 60 Year
  Sex: Female

DRUGS (4)
  1. CHAMPIX [Suspect]
     Route: 048
     Dates: start: 20070809, end: 20070830
  2. PROZAC [Concomitant]
     Route: 048
  3. NICORETTE [Concomitant]
     Route: 055
     Dates: start: 20070611, end: 20070802
  4. NICORETTE [Concomitant]
     Route: 062
     Dates: start: 20070611, end: 20070802

REACTIONS (3)
  - NERVOUSNESS [None]
  - PARANOID PERSONALITY DISORDER [None]
  - SOCIAL AVOIDANT BEHAVIOUR [None]
